FAERS Safety Report 8573131-2 (Version None)
Quarter: 2012Q2

REPORT INFORMATION
  Report Type: 
  Country: None (occurrence: None)
  Receive Date: 20120418
  Receipt Date: 20110217
  Transmission Date: 20120825
  Serious: Yes (Other)
  Sender: FDA-Public Use
  Company Number: PHHY2011US15069

PATIENT
  Sex: Female

DRUGS (1)
  1. DIOVAN HCT [Suspect]
     Dosage: 80/12.5 ONE PER DAY
     Dates: start: 20100401, end: 20101229

REACTIONS (3)
  - FATIGUE [None]
  - DIZZINESS [None]
  - BLOOD PRESSURE DECREASED [None]
